FAERS Safety Report 25703660 (Version 2)
Quarter: 2025Q3

REPORT INFORMATION
  Report Type: Report from Study
  Country: US (occurrence: US)
  Receive Date: 20250820
  Receipt Date: 20250908
  Transmission Date: 20251021
  Serious: No
  Sender: SUNOVION
  Company Number: US-SMPA-2025SPA010381

PATIENT
  Age: 85 Year
  Sex: Male

DRUGS (12)
  1. ORGOVYX [Suspect]
     Active Substance: RELUGOLIX
     Indication: Prostate cancer
     Route: 048
  2. ORGOVYX [Suspect]
     Active Substance: RELUGOLIX
     Route: 048
  3. ALFUZOSIN HYDROCHLORIDE [Concomitant]
     Active Substance: ALFUZOSIN HYDROCHLORIDE
  4. AMLODIPINE [Concomitant]
     Active Substance: AMLODIPINE BESYLATE
  5. CLARITIN [Concomitant]
     Active Substance: LORATADINE
  6. FINASTERIDE [Concomitant]
     Active Substance: FINASTERIDE
  7. FLONASE [Concomitant]
     Active Substance: FLUTICASONE PROPIONATE
  8. METOPROLOL [Concomitant]
     Active Substance: METOPROLOL
  9. PRADAXA [Concomitant]
     Active Substance: DABIGATRAN ETEXILATE MESYLATE
  10. SIMVASTATIN [Concomitant]
     Active Substance: SIMVASTATIN
  11. TYLENOL [Concomitant]
     Active Substance: ACETAMINOPHEN
  12. VITAMIN D [Concomitant]
     Active Substance: VITAMIN D NOS

REACTIONS (5)
  - Flatulence [Unknown]
  - Cold flash [Unknown]
  - Dyspepsia [Unknown]
  - Diarrhoea [Unknown]
  - Hot flush [Unknown]
